FAERS Safety Report 21232579 (Version 1)
Quarter: 2022Q3

REPORT INFORMATION
  Report Type: Spontaneous
  Country: US (occurrence: None)
  Receive Date: 20220818
  Receipt Date: 20220818
  Transmission Date: 20221027
  Serious: No
  Sender: FDA-Public Use
  Company Number: None

PATIENT
  Sex: Female

DRUGS (2)
  1. TREPROSTINIL [Suspect]
     Active Substance: TREPROSTINIL
     Indication: Pulmonary arterial hypertension
     Dosage: OTHER QUANTITY : 90NG/KG/MIN ;?OTHER FREQUENCY : CONTINUOUS ;?
     Route: 042
     Dates: start: 202105
  2. DEVICE [Suspect]
     Active Substance: DEVICE

REACTIONS (5)
  - Dyspnoea [None]
  - Mobility decreased [None]
  - Headache [None]
  - Therapy change [None]
  - Device malfunction [None]
